FAERS Safety Report 10203625 (Version 1)
Quarter: 2014Q2

REPORT INFORMATION
  Report Type: Spontaneous
  Country: US (occurrence: None)
  Receive Date: 20140523
  Receipt Date: 20140523
  Transmission Date: 20141212
  Serious: Yes (Hospitalization)
  Sender: FDA-Public Use
  Company Number: 2014P1004249

PATIENT
  Age: 23 Year
  Sex: Male
  Weight: 81.6 kg

DRUGS (12)
  1. CLONIDINE [Suspect]
     Indication: ARTHRALGIA
     Route: 061
  2. KETAMINE [Suspect]
     Route: 061
  3. LIDOCAINE [Concomitant]
  4. GABAPENTIN [Concomitant]
  5. IMIPRAMINE [Concomitant]
  6. MEFENAMIC ACID [Concomitant]
  7. ADDERALL (DEXTROAMPHETAMINE/AMPHETAMINE) [Concomitant]
  8. ARIPIPRAZOLE [Concomitant]
  9. CLONAZEPAM [Concomitant]
  10. DULOXETINE [Concomitant]
  11. OXYCODONE/ACETAMINOPHEN [Concomitant]
  12. ZOLPIDEM [Concomitant]

REACTIONS (14)
  - Mental status changes [None]
  - Heart rate decreased [None]
  - Respiratory rate increased [None]
  - Depressed level of consciousness [None]
  - Dysarthria [None]
  - Disorientation [None]
  - Mydriasis [None]
  - Sinus bradycardia [None]
  - Drug screen positive [None]
  - Hypertension [None]
  - Subarachnoid haemorrhage [None]
  - Vasculitis [None]
  - Toxicity to various agents [None]
  - Wrong technique in drug usage process [None]
